FAERS Safety Report 26191570 (Version 1)
Quarter: 2025Q4

REPORT INFORMATION
  Report Type: Spontaneous
  Country: EU (occurrence: EU)
  Receive Date: 20251223
  Receipt Date: 20251223
  Transmission Date: 20260118
  Serious: Yes (Other)
  Sender: REGENERON
  Company Number: EU-BAYER-2025A165656

PATIENT
  Age: 84 Year
  Sex: Female

DRUGS (6)
  1. EYLEA [Suspect]
     Active Substance: AFLIBERCEPT
     Indication: Product used for unknown indication
     Dosage: 2 MG BOTH EYES, 40 MG/ML
  2. EYLEA HD [Suspect]
     Active Substance: AFLIBERCEPT
     Indication: Product used for unknown indication
     Dosage: 8 MG BOTH EYES, 114.3 MG/ML
  3. EYLEA HD [Suspect]
     Active Substance: AFLIBERCEPT
     Dosage: INTRAVITREAL INJECTION (4 WEEKS APART), 114.3 MG/ML
  4. EYLEA HD [Suspect]
     Active Substance: AFLIBERCEPT
     Dosage: INTRAVITREAL INJECTION (6 WEEKS APART), 114.3 MG/ML
  5. EYLEA HD [Suspect]
     Active Substance: AFLIBERCEPT
     Dosage: TWO INJECTIONS (4 WEEKS APART) , 114.3 MG/ML
  6. FARICIMAB [Concomitant]
     Active Substance: FARICIMAB
     Indication: Product used for unknown indication
     Dosage: UNK, LEFT EYE,

REACTIONS (3)
  - Retinal oedema [Unknown]
  - Retinal oedema [Unknown]
  - Retinal oedema [Unknown]
